FAERS Safety Report 6119254-9 (Version None)
Quarter: 2009Q1

REPORT INFORMATION
  Report Type: 
  Country: None (occurrence: None)
  Receive Date: 20090316
  Receipt Date: 20090303
  Transmission Date: 20090719
  Serious: Yes (Hospitalization)
  Sender: FDA-Public Use
  Company Number: US-ELI_LILLY_AND_COMPANY-US200903000945

PATIENT
  Sex: Male

DRUGS (1)
  1. FORTEO [Suspect]
     Dosage: 20 UG, DAILY (1/D)
     Route: 058
     Dates: start: 20081001, end: 20090201

REACTIONS (4)
  - BACK PAIN [None]
  - BIOPSY BONE ABNORMAL [None]
  - HEADACHE [None]
  - PLATELET COUNT DECREASED [None]
